FAERS Safety Report 24771452 (Version 6)
Quarter: 2025Q4

REPORT INFORMATION
  Report Type: Spontaneous
  Country: CA (occurrence: CA)
  Receive Date: 20241224
  Receipt Date: 20251226
  Transmission Date: 20260118
  Serious: Yes (Congenital Anomaly)
  Sender: ROCHE
  Company Number: CA-ROCHE-10000163319

PATIENT

DRUGS (34)
  1. ACTEMRA [Suspect]
     Active Substance: TOCILIZUMAB
     Indication: Product used for unknown indication
     Route: 064
  2. ACTEMRA [Suspect]
     Active Substance: TOCILIZUMAB
     Route: 064
  3. ACTEMRA [Suspect]
     Active Substance: TOCILIZUMAB
     Route: 064
  4. ACTEMRA [Suspect]
     Active Substance: TOCILIZUMAB
     Route: 064
  5. ACTEMRA [Suspect]
     Active Substance: TOCILIZUMAB
     Route: 064
  6. ACTEMRA [Suspect]
     Active Substance: TOCILIZUMAB
     Route: 064
  7. ACTEMRA [Suspect]
     Active Substance: TOCILIZUMAB
     Route: 064
  8. ACTEMRA [Suspect]
     Active Substance: TOCILIZUMAB
     Route: 064
  9. ACTEMRA [Suspect]
     Active Substance: TOCILIZUMAB
     Route: 064
  10. ACTEMRA [Suspect]
     Active Substance: TOCILIZUMAB
     Route: 064
  11. ACTEMRA [Suspect]
     Active Substance: TOCILIZUMAB
     Route: 064
  12. ACTEMRA [Suspect]
     Active Substance: TOCILIZUMAB
     Route: 064
  13. ACTEMRA [Suspect]
     Active Substance: TOCILIZUMAB
     Route: 064
  14. ACTEMRA [Suspect]
     Active Substance: TOCILIZUMAB
     Route: 064
  15. ACTEMRA [Suspect]
     Active Substance: TOCILIZUMAB
     Route: 064
  16. ACTEMRA [Suspect]
     Active Substance: TOCILIZUMAB
     Route: 064
  17. RITUXIMAB [Suspect]
     Active Substance: RITUXIMAB
     Indication: Product used for unknown indication
     Route: 064
  18. RITUXIMAB [Suspect]
     Active Substance: RITUXIMAB
     Route: 064
  19. RITUXIMAB [Suspect]
     Active Substance: RITUXIMAB
     Route: 064
  20. RITUXIMAB [Suspect]
     Active Substance: RITUXIMAB
     Route: 064
  21. RITUXIMAB [Suspect]
     Active Substance: RITUXIMAB
     Route: 064
  22. RITUXIMAB [Suspect]
     Active Substance: RITUXIMAB
     Route: 064
  23. RITUXIMAB [Suspect]
     Active Substance: RITUXIMAB
     Route: 064
  24. RITUXIMAB [Suspect]
     Active Substance: RITUXIMAB
     Route: 064
  25. RITUXIMAB [Suspect]
     Active Substance: RITUXIMAB
     Route: 064
  26. RITUXIMAB [Suspect]
     Active Substance: RITUXIMAB
     Dosage: THERAPY DURATION: 5 MONTHS
     Route: 064
  27. RITUXIMAB [Suspect]
     Active Substance: RITUXIMAB
     Dosage: THERAPY DURATION: 5 MONTHS
     Route: 064
  28. RITUXIMAB [Suspect]
     Active Substance: RITUXIMAB
     Dosage: THERAPY DURATION: 5 MONTHS
     Route: 064
  29. RITUXIMAB [Suspect]
     Active Substance: RITUXIMAB
     Dosage: THERAPY DURATION: 5 MONTHS
     Route: 064
  30. RITUXIMAB [Suspect]
     Active Substance: RITUXIMAB
     Dosage: THERAPY DURATION: 5 MONTHS
     Route: 064
  31. SULFAMETHOXAZOLE\TRIMETHOPRIM [Suspect]
     Active Substance: SULFAMETHOXAZOLE\TRIMETHOPRIM
     Indication: Product used for unknown indication
     Route: 064
  32. DESOGESTREL [Concomitant]
     Active Substance: DESOGESTREL
     Route: 064
  33. DESOGESTREL\ETHINYL ESTRADIOL [Concomitant]
     Active Substance: DESOGESTREL\ETHINYL ESTRADIOL
     Route: 064
  34. NAPROXEN [Concomitant]
     Active Substance: NAPROXEN
     Route: 064

REACTIONS (2)
  - Congenital anomaly [Not Recovered/Not Resolved]
  - Foetal exposure during pregnancy [Unknown]
